FAERS Safety Report 9841507 (Version 3)
Quarter: 2014Q1

REPORT INFORMATION
  Report Type: Report from Study
  Country: US (occurrence: US)
  Receive Date: 20140124
  Receipt Date: 20140226
  Transmission Date: 20141002
  Serious: Yes (Death)
  Sender: FDA-Public Use
  Company Number: US-ELI_LILLY_AND_COMPANY-US201312006954

PATIENT
  Age: 72 Year
  Sex: Female
  Weight: 108.84 kg

DRUGS (9)
  1. HUMAN INSULIN (RDNA ORIGIN) REGULAR [Suspect]
     Indication: DIABETES MELLITUS INADEQUATE CONTROL
     Dosage: 355 U, EACH MORNING
     Route: 058
     Dates: start: 20130703, end: 20131127
  2. HUMAN INSULIN (RDNA ORIGIN) REGULAR [Suspect]
     Dosage: 245 U, EACH EVENING
     Route: 058
     Dates: start: 20130703
  3. ASPIRIN [Concomitant]
     Indication: PROPHYLAXIS
     Dosage: UNK
     Dates: start: 2010
  4. HYDROCHLOROTHIAZIDE [Concomitant]
     Indication: HYPERTENSION
     Dosage: UNK
     Dates: start: 1993
  5. LEVOTHYROXINE [Concomitant]
     Indication: HYPOTHYROIDISM
     Dosage: UNK
     Dates: start: 2011
  6. LISINOPRIL [Concomitant]
     Indication: HYPERTENSION
     Dosage: UNK
     Dates: start: 2011
  7. CLOPIDOGREL [Concomitant]
     Indication: CORONARY ARTERY DISEASE
     Dosage: UNK
     Dates: start: 2012
  8. TRILIPIX [Concomitant]
     Indication: DYSLIPIDAEMIA
     Dosage: UNK
     Dates: start: 2010
  9. ATORVASTATIN [Concomitant]
     Indication: DYSLIPIDAEMIA
     Dosage: UNK
     Dates: start: 2012

REACTIONS (2)
  - Brain injury [Fatal]
  - Hypoglycaemia [Fatal]
